FAERS Safety Report 19024197 (Version 2)
Quarter: 2021Q2

REPORT INFORMATION
  Report Type: Spontaneous
  Country: US (occurrence: US)
  Receive Date: 20210318
  Receipt Date: 20210407
  Transmission Date: 20210717
  Serious: No
  Sender: FDA-Public Use
  Company Number: US-ELI_LILLY_AND_COMPANY-US202103008042

PATIENT
  Age: 54 Year
  Sex: Male

DRUGS (4)
  1. TALTZ [Suspect]
     Active Substance: IXEKIZUMAB
     Indication: ANKYLOSING SPONDYLITIS
  2. CALCIUM [Concomitant]
     Active Substance: CALCIUM
     Indication: PRODUCT USED FOR UNKNOWN INDICATION
  3. TALTZ [Suspect]
     Active Substance: IXEKIZUMAB
     Indication: PSORIATIC ARTHROPATHY
     Dosage: 80 MG, OTHER (EVERY FOUR WEEKS)
     Route: 065
     Dates: start: 20210223
  4. TALTZ [Suspect]
     Active Substance: IXEKIZUMAB
     Indication: PSORIASIS

REACTIONS (12)
  - Feeling abnormal [Recovering/Resolving]
  - Arthralgia [Unknown]
  - Fatigue [Recovering/Resolving]
  - Malaise [Recovering/Resolving]
  - Psoriasis [Recovering/Resolving]
  - Joint stiffness [Not Recovered/Not Resolved]
  - Inappropriate schedule of product administration [Unknown]
  - Pruritus [Unknown]
  - Pain in extremity [Recovering/Resolving]
  - Urticaria [Recovered/Resolved]
  - Drug ineffective [Unknown]
  - Pain [Recovering/Resolving]

NARRATIVE: CASE EVENT DATE: 202102
